FAERS Safety Report 5374501-6 (Version None)
Quarter: 2007Q2

REPORT INFORMATION
  Report Type: 
  Country: None (occurrence: None)
  Receive Date: 20070629
  Receipt Date: 20070403
  Transmission Date: 20071010
  Serious: No
  Sender: FDA-Public Use
  Company Number: A0645797A

PATIENT
  Age: 76 Year
  Sex: Female

DRUGS (9)
  1. ADVAIR DISKUS 100/50 [Suspect]
     Indication: CHRONIC OBSTRUCTIVE PULMONARY DISEASE
     Dosage: 1PUFF TWICE PER DAY
     Route: 055
  2. SPIRIVA [Concomitant]
  3. ENALAPRIL [Concomitant]
  4. TRIAMTERENE AND HYDROCHLOROTHIAZIDE [Concomitant]
  5. PREMARIN [Concomitant]
  6. CRESTOR [Concomitant]
  7. ACIPHEX [Concomitant]
  8. ALBUTEROL [Concomitant]
  9. OXYGEN [Concomitant]

REACTIONS (4)
  - CHOKING SENSATION [None]
  - DRY MOUTH [None]
  - DYSPHONIA [None]
  - ORAL MUCOSAL ERUPTION [None]
